FAERS Safety Report 9530860 (Version 1)
Quarter: 2013Q2

REPORT INFORMATION
  Report Type: Spontaneous
  Country: US (occurrence: None)
  Receive Date: 20130418
  Receipt Date: 20130418
  Transmission Date: 20140414
  Serious: Yes (Other)
  Sender: FDA-Public Use
  Company Number: 100USA01506

PATIENT
  Age: 65 Year
  Sex: Female

DRUGS (2)
  1. SINGULAIR [Suspect]
     Indication: RESPIRATORY DISORDER
     Dosage: 1-10MG, HS, ORAL
     Route: 048
  2. ZETIA [Suspect]
     Indication: BLOOD CHOLESTEROL INCREASED
     Dosage: 1-10MG, HS, ORAL
     Route: 048

REACTIONS (2)
  - Myalgia [None]
  - Drug ineffective [None]
